FAERS Safety Report 9155378 (Version 3)
Quarter: 2013Q2

REPORT INFORMATION
  Report Type: Spontaneous
  Country: ES (occurrence: ES)
  Receive Date: 20130311
  Receipt Date: 20130528
  Transmission Date: 20140414
  Serious: Yes (Hospitalization)
  Sender: FDA-Public Use
  Company Number: ES-009507513-1303ESP002955

PATIENT
  Age: 10 Year
  Sex: Female
  Weight: 32 kg

DRUGS (3)
  1. AMITRIPTYLINE HYDROCHLORIDE [Suspect]
     Indication: TENSION HEADACHE
     Dosage: 12.5 MG, QD
     Route: 048
     Dates: start: 20130107, end: 20130115
  2. AMITRIPTYLINE HYDROCHLORIDE [Suspect]
     Dosage: 25 MG, QD
     Route: 048
     Dates: start: 20130116, end: 20130202
  3. AMITRIPTYLINE HYDROCHLORIDE [Suspect]
     Dosage: 12.5 MG, QD
     Route: 048
     Dates: start: 20130204, end: 20130205

REACTIONS (10)
  - Back pain [Recovered/Resolved]
  - Muscle contracture [Recovered/Resolved]
  - Tachycardia [Recovered/Resolved]
  - Dyspnoea [Recovered/Resolved]
  - Withdrawal syndrome [Unknown]
  - Dyskinesia [Not Recovered/Not Resolved]
  - Feeling hot [Not Recovered/Not Resolved]
  - Off label use [Unknown]
  - Incorrect dose administered [Unknown]
  - Dizziness [Not Recovered/Not Resolved]
